FAERS Safety Report 5324948-9 (Version None)
Quarter: 2007Q2

REPORT INFORMATION
  Report Type: 
  Country: None (occurrence: None)
  Receive Date: 20070510
  Receipt Date: 20070510
  Transmission Date: 20071010
  Serious: Yes (Hospitalization)
  Sender: FDA-Public Use
  Company Number: None

PATIENT
  Age: 53 Year
  Sex: Male

DRUGS (6)
  1. FLUDARABINE PHOSPHATE [Suspect]
     Indication: CHEMOTHERAPY
     Dosage: 42 MG IV
     Route: 042
     Dates: start: 20070102, end: 20070103
  2. ALLOPURINOL [Concomitant]
  3. HYDROCODONE BITARTRATE + ACETAMINOPHEN [Concomitant]
  4. OXYCODONE HCL [Concomitant]
  5. BACTRIM DS [Concomitant]
  6. VALACYCLOVIR [Concomitant]

REACTIONS (1)
  - ANAEMIA [None]
